FAERS Safety Report 9448908 (Version 2)
Quarter: 2013Q3

REPORT INFORMATION
  Report Type: Spontaneous
  Country: US (occurrence: US)
  Receive Date: 20130808
  Receipt Date: 20130815
  Transmission Date: 20140515
  Serious: No
  Sender: FDA-Public Use
  Company Number: US-009507513-1308USA003685

PATIENT
  Sex: Female

DRUGS (1)
  1. AFRIN [Suspect]
     Indication: DYSPNOEA
     Dosage: UNK, UNKNOWN
     Route: 048

REACTIONS (3)
  - Dependence [Not Recovered/Not Resolved]
  - Off label use [Unknown]
  - Product container issue [Unknown]
